FAERS Safety Report 5982538-9 (Version None)
Quarter: 2008Q4

REPORT INFORMATION
  Report Type: 
  Country: None (occurrence: None)
  Receive Date: 20081208
  Receipt Date: 20081124
  Transmission Date: 20090506
  Serious: Yes (Other)
  Sender: FDA-Public Use
  Company Number: PHBS2008FR06484

PATIENT
  Age: 22 Year
  Sex: Female

DRUGS (4)
  1. ETOPOSIDE [Suspect]
     Indication: EWING'S SARCOMA
  2. VINCRISTINE [Suspect]
     Indication: EWING'S SARCOMA
  3. IFOSFAMIDE [Suspect]
     Indication: EWING'S SARCOMA
  4. DOXORUBICIN HCL [Suspect]

REACTIONS (14)
  - CEREBELLAR SYNDROME [None]
  - CONFUSIONAL STATE [None]
  - DIPLOPIA [None]
  - IIIRD NERVE DISORDER [None]
  - NAUSEA [None]
  - NERVOUS SYSTEM DISORDER [None]
  - NYSTAGMUS [None]
  - SOMNOLENCE [None]
  - SURGERY [None]
  - VITAMIN B1 DEFICIENCY [None]
  - VITAMIN B6 DEFICIENCY [None]
  - VOMITING [None]
  - WEIGHT DECREASED [None]
  - WERNICKE'S ENCEPHALOPATHY [None]
